FAERS Safety Report 9295795 (Version 2)
Quarter: 2013Q2

REPORT INFORMATION
  Report Type: Spontaneous
  Country: US (occurrence: US)
  Receive Date: 20130517
  Receipt Date: 20130619
  Transmission Date: 20140414
  Serious: Yes (Hospitalization)
  Sender: FDA-Public Use
  Company Number: US-BAYER-2013-060279

PATIENT
  Age: 21 Year
  Sex: Female
  Weight: 102 kg

DRUGS (10)
  1. YAZ [Suspect]
  2. CIPROFLOXACIN [Concomitant]
     Dosage: 500 MG, BID
     Route: 048
  3. DICYCLOMINE [Concomitant]
     Indication: PAIN
     Dosage: 20 MG, EVERY 6 HOURS AS NEEDED
     Route: 048
  4. ERYTHROMYCIN [Concomitant]
     Dosage: ? INCH, BID
  5. PROAIR HFA [Concomitant]
     Dosage: 1-2 PUFFS EVERY 4-6 HOURS AS NEED, PRN
  6. ALEVE [Concomitant]
  7. Z-PAK [Concomitant]
     Dosage: 250 MG, UNK
  8. FLEXERIL [Concomitant]
  9. METHYLDOPA [Concomitant]
     Dosage: 500 MG, BID
     Route: 048
  10. OXYGEN [Concomitant]
     Indication: PULMONARY EMBOLISM

REACTIONS (2)
  - Pulmonary embolism [Recovering/Resolving]
  - Cholelithiasis [None]
